FAERS Safety Report 22239649 (Version 1)
Quarter: 2023Q2

REPORT INFORMATION
  Report Type: Spontaneous
  Country: DK (occurrence: DK)
  Receive Date: 20230421
  Receipt Date: 20230421
  Transmission Date: 20230721
  Serious: Yes (Life-Threatening, Hospitalization)
  Sender: FDA-Public Use
  Company Number: None

PATIENT
  Age: 78 Year
  Sex: Female

DRUGS (1)
  1. MORPHINE SULFATE [Suspect]
     Active Substance: MORPHINE SULFATE
     Indication: Pain
     Dosage: DOSAGE: THE PATIENT HAS ALL IN ALL TAKEN 10 MG THREE TIMES DURING 2-3 DAYS
     Dates: start: 20230323

REACTIONS (5)
  - Toxicity to various agents [Unknown]
  - Respiratory disorder [Unknown]
  - Hypoxia [Recovering/Resolving]
  - Pancreatitis [Unknown]
  - Dizziness [Unknown]

NARRATIVE: CASE EVENT DATE: 20230326
